FAERS Safety Report 6145401-9 (Version None)
Quarter: 2009Q2

REPORT INFORMATION
  Report Type: 
  Country: None (occurrence: None)
  Receive Date: 20090406
  Receipt Date: 20090224
  Transmission Date: 20091009
  Serious: Yes (Life-Threatening, Hospitalization)
  Sender: FDA-Public Use
  Company Number: FR-GENENTECH-260376

PATIENT
  Sex: Male

DRUGS (5)
  1. RITUXIMAB [Suspect]
     Indication: LYMPHOPROLIFERATIVE DISORDER
     Dosage: 750 MG, UNK
     Route: 042
     Dates: start: 20080403
  2. CYCLOPHOSPHAMIDE [Suspect]
     Indication: EPSTEIN-BARR VIRUS ASSOCIATED LYMPHOPROLIFERATIVE DISORDER
     Dosage: UNK
     Dates: start: 20080411
  3. DOXORUBICIN HCL [Suspect]
     Indication: EPSTEIN-BARR VIRUS ASSOCIATED LYMPHOPROLIFERATIVE DISORDER
     Dosage: UNK
     Dates: start: 20080411
  4. VINCRISTINE [Suspect]
     Indication: EPSTEIN-BARR VIRUS ASSOCIATED LYMPHOPROLIFERATIVE DISORDER
     Dosage: UNK
     Dates: start: 20090411
  5. PREDNISOLONE [Suspect]
     Indication: EPSTEIN-BARR VIRUS ASSOCIATED LYMPHOPROLIFERATIVE DISORDER
     Dosage: UNK
     Dates: start: 20080411

REACTIONS (3)
  - ANAEMIA [None]
  - SEPSIS [None]
  - SEPTIC SHOCK [None]
